FAERS Safety Report 9900321 (Version 5)
Quarter: 2014Q2

REPORT INFORMATION
  Report Type: Spontaneous
  Country: US (occurrence: US)
  Receive Date: 20140216
  Receipt Date: 20140519
  Transmission Date: 20141212
  Serious: Yes (Hospitalization, Other)
  Sender: FDA-Public Use
  Company Number: US-009507513-1402USA004151

PATIENT
  Sex: Female
  Weight: 56.69 kg

DRUGS (7)
  1. FOSAMAX [Suspect]
     Indication: OSTEOPOROSIS
     Dosage: UNK
     Route: 048
     Dates: start: 1995
  2. FOSAMAX [Suspect]
     Indication: OSTEOPENIA
     Dosage: 70 MG, UNK
     Route: 048
     Dates: end: 200507
  3. BONIVA [Suspect]
     Indication: OSTEOPOROSIS
     Dosage: 150 MG, UNK
     Route: 048
     Dates: start: 200807, end: 201104
  4. BONIVA [Suspect]
     Indication: OSTEOPENIA
  5. ALENDRONATE SODIUM [Suspect]
     Indication: OSTEOPOROSIS
     Dosage: 70 MG, UNK
     Route: 048
     Dates: start: 200807, end: 200809
  6. ALENDRONATE SODIUM [Suspect]
     Indication: OSTEOPENIA
  7. VITAMINS (UNSPECIFIED) [Concomitant]
     Dosage: 500-1000

REACTIONS (30)
  - Femur fracture [Unknown]
  - Intramedullary rod insertion [Unknown]
  - Fracture nonunion [Recovering/Resolving]
  - Device breakage [Unknown]
  - Medical device removal [Unknown]
  - Open reduction of fracture [Unknown]
  - Bone graft [Unknown]
  - Anaemia postoperative [Unknown]
  - Low turnover osteopathy [Unknown]
  - Hypertension [Unknown]
  - Hysterectomy [Unknown]
  - Foot operation [Unknown]
  - Appendicectomy [Unknown]
  - Fall [Unknown]
  - Fall [Unknown]
  - Spinal compression fracture [Unknown]
  - Pelvic fracture [Unknown]
  - Osteopenia [Unknown]
  - Urinary tract infection [Unknown]
  - Infection [Unknown]
  - Pain [Unknown]
  - Bursitis [Unknown]
  - Osteoarthritis [Unknown]
  - Bursitis [Unknown]
  - Sleep apnoea syndrome [Unknown]
  - Macular degeneration [Unknown]
  - Sinus disorder [Unknown]
  - Bladder disorder [Unknown]
  - Constipation [Unknown]
  - Arthralgia [Unknown]
